FAERS Safety Report 18834942 (Version 1)
Quarter: 2021Q1

REPORT INFORMATION
  Report Type: Spontaneous
  Country: CO (occurrence: CO)
  Receive Date: 20210203
  Receipt Date: 20210203
  Transmission Date: 20210419
  Serious: Yes (Death, Hospitalization)
  Sender: FDA-Public Use
  Company Number: CO-CELGENEUS-COL-20180710485

PATIENT
  Age: 53 Year
  Sex: Male

DRUGS (1)
  1. REVLIMID [Suspect]
     Active Substance: LENALIDOMIDE
     Indication: PLASMA CELL MYELOMA
     Dosage: 5 MILLIGRAM
     Route: 048
     Dates: start: 20180712, end: 20180910

REACTIONS (6)
  - Oedema [Not Recovered/Not Resolved]
  - Death [Fatal]
  - Anaemia [Not Recovered/Not Resolved]
  - Hypertension [Not Recovered/Not Resolved]
  - Respiratory distress [Not Recovered/Not Resolved]
  - Tachycardia [Not Recovered/Not Resolved]

NARRATIVE: CASE EVENT DATE: 20180726
